FAERS Safety Report 12420928 (Version 1)
Quarter: 2016Q2

REPORT INFORMATION
  Report Type: Spontaneous
  Country: US (occurrence: US)
  Receive Date: 20160531
  Receipt Date: 20160531
  Transmission Date: 20160815
  Serious: No
  Sender: FDA-Public Use
  Company Number: US-MDT-ADR-2016-00972

PATIENT
  Age: 29 Year
  Sex: Female

DRUGS (5)
  1. ZANAFLEX [Suspect]
     Active Substance: TIZANIDINE HYDROCHLORIDE
     Route: 048
  2. DEPO-PROVERA [Suspect]
     Active Substance: MEDROXYPROGESTERONE ACETATE
     Route: 030
  3. BACLOFEN. [Suspect]
     Active Substance: BACLOFEN
     Route: 048
  4. BACLOFEN. [Suspect]
     Active Substance: BACLOFEN
     Dosage: 96.1 MCG/DAY
     Route: 037
     Dates: end: 20160506
  5. BACLOFEN. [Suspect]
     Active Substance: BACLOFEN
     Dosage: 105.7 MCG/DAY
     Route: 037
     Dates: start: 20160506

REACTIONS (2)
  - Muscle spasticity [Unknown]
  - Medical device site discomfort [Unknown]

NARRATIVE: CASE EVENT DATE: 20160506
